FAERS Safety Report 19888348 (Version 1)
Quarter: 2021Q3

REPORT INFORMATION
  Report Type: Report from Study
  Country: CA (occurrence: CA)
  Receive Date: 20210928
  Receipt Date: 20210928
  Transmission Date: 20211014
  Serious: Yes (Other)
  Sender: FDA-Public Use
  Company Number: CA-ORION CORPORATION ORION PHARMA-TREX2019-4990

PATIENT
  Sex: Female

DRUGS (17)
  1. METHOTREXATE (TRADE NAME UNKNOWN) [Suspect]
     Active Substance: METHOTREXATE
     Route: 065
  2. ILARIS [Suspect]
     Active Substance: CANAKINUMAB
     Route: 058
  3. INDOMETHACIN. [Concomitant]
     Active Substance: INDOMETHACIN
     Route: 065
  4. PREDNISONE. [Concomitant]
     Active Substance: PREDNISONE
     Route: 065
  5. ILARIS [Suspect]
     Active Substance: CANAKINUMAB
     Route: 058
  6. PREDNISONE. [Concomitant]
     Active Substance: PREDNISONE
     Route: 065
  7. ILARIS [Suspect]
     Active Substance: CANAKINUMAB
     Route: 058
  8. CICLOSPORIN [Concomitant]
     Active Substance: CYCLOSPORINE
     Route: 065
  9. ILARIS [Suspect]
     Active Substance: CANAKINUMAB
     Indication: STILL^S DISEASE
     Route: 058
  10. ILARIS [Suspect]
     Active Substance: CANAKINUMAB
     Route: 058
  11. METHOTREXATE (TRADE NAME UNKNOWN) [Suspect]
     Active Substance: METHOTREXATE
     Route: 058
  12. ILARIS [Suspect]
     Active Substance: CANAKINUMAB
     Route: 058
  13. CICLOSPORIN [Suspect]
     Active Substance: CYCLOSPORINE
     Indication: PRODUCT USED FOR UNKNOWN INDICATION
     Route: 065
  14. ILARIS [Suspect]
     Active Substance: CANAKINUMAB
     Route: 058
  15. ILARIS [Suspect]
     Active Substance: CANAKINUMAB
     Route: 058
  16. METHOTREXATE (TRADE NAME UNKNOWN) [Suspect]
     Active Substance: METHOTREXATE
     Indication: PRODUCT USED FOR UNKNOWN INDICATION
     Route: 065
  17. ILARIS [Suspect]
     Active Substance: CANAKINUMAB
     Route: 058

REACTIONS (11)
  - Rash [Recovering/Resolving]
  - Condition aggravated [Recovered/Resolved]
  - Stress [Recovering/Resolving]
  - Arthropod bite [Recovered/Resolved]
  - Pruritus [Recovered/Resolved]
  - Skin lesion [Recovered/Resolved]
  - Still^s disease [Recovered/Resolved]
  - Drug ineffective [Recovering/Resolving]
  - Erythema [Recovered/Resolved]
  - Hepatic enzyme increased [Recovered/Resolved]
  - Scratch [Recovered/Resolved]
